FAERS Safety Report 8244176-7 (Version None)
Quarter: 2012Q1

REPORT INFORMATION
  Report Type: 
  Country: None (occurrence: None)
  Receive Date: 20120309
  Receipt Date: 20101101
  Transmission Date: 20120608
  Serious: Yes (Other)
  Sender: FDA-Public Use
  Company Number: PHHY2010US67145

PATIENT
  Age: 44 Year
  Sex: Female

DRUGS (2)
  1. EXTAVIA [Suspect]
     Indication: MULTIPLE SCLEROSIS
     Dosage: , QOD, SUBCUTANEOUS
     Route: 058
     Dates: start: 20100616, end: 20100921
  2. ACETAMINOPHEN [Concomitant]

REACTIONS (5)
  - OROPHARYNGEAL PAIN [None]
  - COUGH [None]
  - PNEUMONIA [None]
  - RHINORRHOEA [None]
  - CHEST PAIN [None]
